FAERS Safety Report 18745096 (Version 3)
Quarter: 2021Q1

REPORT INFORMATION
  Report Type: Report from Study
  Country: None (occurrence: ES)
  Receive Date: 20210115
  Receipt Date: 20210211
  Transmission Date: 20210419
  Serious: Yes (Hospitalization)
  Sender: FDA-Public Use
  Company Number: ES-ABBVIE-21K-144-3730008-00

PATIENT
  Age: 50 Year
  Sex: Male

DRUGS (2)
  1. DUODOPA [Suspect]
     Active Substance: CARBIDOPA\LEVODOPA
     Indication: PARKINSON^S DISEASE
     Route: 050
     Dates: start: 20200821, end: 202101
  2. DUODOPA [Suspect]
     Active Substance: CARBIDOPA\LEVODOPA
     Dosage: MORNING DOSE 18.5, CONTINUOUS DOSE 5, EXTRA DOSE 7
     Route: 050
     Dates: start: 202101

REACTIONS (5)
  - Tremor [Recovered/Resolved]
  - Constipation [Recovered/Resolved]
  - On and off phenomenon [Recovered/Resolved]
  - Extra dose administered [Unknown]
  - Walking aid user [Unknown]

NARRATIVE: CASE EVENT DATE: 202101
